FAERS Safety Report 6156200-6 (Version None)
Quarter: 2009Q2

REPORT INFORMATION
  Report Type: 
  Country: None (occurrence: None)
  Receive Date: 20090410
  Receipt Date: 20090410
  Transmission Date: 20091009
  Serious: Yes (Death)
  Sender: FDA-Public Use
  Company Number: None

PATIENT
  Age: 53 Year
  Sex: Female
  Weight: 54 kg

DRUGS (1)
  1. MELPHALAN [Suspect]
     Indication: AMYLOIDOSIS
     Dosage: 110 MG X 2 DAYS IV
     Route: 042

REACTIONS (5)
  - CARDIO-RESPIRATORY ARREST [None]
  - DYSPNOEA EXERTIONAL [None]
  - HYPOTENSION [None]
  - LOBAR PNEUMONIA [None]
  - PLEURAL EFFUSION [None]
